FAERS Safety Report 22642621 (Version 14)
Quarter: 2023Q4

REPORT INFORMATION
  Report Type: Spontaneous
  Country: PL (occurrence: PL)
  Receive Date: 20230627
  Receipt Date: 20231219
  Transmission Date: 20240110
  Serious: Yes (Death, Life-Threatening, Hospitalization, Other)
  Sender: FDA-Public Use
  Company Number: PL-MYLANLABS-2023M1064452

PATIENT
  Age: 64 Year
  Sex: Female

DRUGS (23)
  1. METOPROLOL [Suspect]
     Active Substance: METOPROLOL
     Indication: Atrial fibrillation
     Dosage: 50 MILLIGRAM, DAILY(1 X 50 MG/50 MG, QD)
     Route: 065
  2. METOPROLOL [Suspect]
     Active Substance: METOPROLOL
     Indication: Osteoarthritis
  3. ACETAMINOPHEN [Interacting]
     Active Substance: ACETAMINOPHEN
     Indication: Arthralgia
     Dosage: 1000 MILLIGRAM, ONCE A DAY(1000 MILLIGRAM, QD)
     Route: 065
  4. ACETAMINOPHEN [Interacting]
     Active Substance: ACETAMINOPHEN
     Indication: Osteoarthritis
     Dosage: 1000 MILLIGRAM, TWO TIMES A DAY
     Route: 065
  5. DIPHENHYDRAMINE [Interacting]
     Active Substance: DIPHENHYDRAMINE
     Indication: Arthralgia
     Dosage: UNK, COMBINATION OF PARACETAMOL WITH DIPHENHYDRAMINE BEFORE NIGHT
     Route: 065
  6. DIPHENHYDRAMINE [Interacting]
     Active Substance: DIPHENHYDRAMINE
     Indication: Osteoarthritis
  7. ACETAMINOPHEN\DIPHENHYDRAMINE HYDROCHLORIDE [Interacting]
     Active Substance: ACETAMINOPHEN\DIPHENHYDRAMINE HYDROCHLORIDE
     Indication: Arthralgia
     Dosage: 1 DOSAGE FORM, ONCE A DAY (1 DOSAGE FORM, QD, AT NIGHT)
     Route: 065
  8. OMEPRAZOLE [Suspect]
     Active Substance: OMEPRAZOLE
     Indication: Abdominal pain upper
     Dosage: 40 MILLIGRAM, ONCE A DAY
     Route: 065
  9. OMEPRAZOLE SODIUM [Interacting]
     Active Substance: OMEPRAZOLE SODIUM
     Indication: Abdominal pain upper
     Dosage: 40 MILLIGRAM, ONCE A DAY(40 MILLIGRAM, QD)
     Route: 065
  10. OMEPRAZOLE SODIUM [Interacting]
     Active Substance: OMEPRAZOLE SODIUM
     Indication: Abdominal pain lower
  11. ACETAMINOPHEN [Suspect]
     Active Substance: ACETAMINOPHEN
     Indication: Osteoarthritis
     Dosage: 1000 MILLIGRAM, TWO TIMES A DAY
     Route: 065
  12. ACETAMINOPHEN [Suspect]
     Active Substance: ACETAMINOPHEN
     Dosage: 2000 MILLIGRAM, TWO TIMES A DAY
     Route: 065
  13. PROPAFENONE [Suspect]
     Active Substance: PROPAFENONE
     Indication: Atrial fibrillation
     Dosage: 300 MILLIGRAM, TWO TIMES A DAY
     Route: 065
  14. PROPAFENONE [Suspect]
     Active Substance: PROPAFENONE
     Indication: Osteoarthritis
     Dosage: 150 MILLIGRAM, TWO TIMES A DAY (2 X 150 MG/150 MG, BID/150 MG, QOD)
     Route: 065
  15. RYTHMOL [Suspect]
     Active Substance: PROPAFENONE HYDROCHLORIDE
     Indication: Atrial fibrillation
     Dosage: 150 MILLIGRAM, TWO TIMES A DAY
     Route: 065
  16. RYTHMOL [Suspect]
     Active Substance: PROPAFENONE HYDROCHLORIDE
     Indication: Osteoarthritis
     Dosage: 300 MILLIGRAM, TWO TIMES A DAY
     Route: 065
  17. WARFARIN [Interacting]
     Active Substance: WARFARIN
     Indication: Atrial fibrillation
     Dosage: UNK (VARIABLE DOSES ADJUSTED TO THE INR VALUE)
     Route: 065
  18. WARFARIN [Interacting]
     Active Substance: WARFARIN
     Indication: Coagulopathy
  19. WARFARIN [Interacting]
     Active Substance: WARFARIN
     Indication: Prophylaxis
  20. WARFARIN [Interacting]
     Active Substance: WARFARIN
     Indication: Osteoarthritis
  21. WARFARIN [Interacting]
     Active Substance: WARFARIN
     Indication: Anticoagulant therapy
  22. WARFARIN [Interacting]
     Active Substance: WARFARIN
     Indication: Abdominal pain upper
  23. CHONDROITIN [Concomitant]
     Active Substance: CHONDROITIN
     Indication: Supplementation therapy
     Dosage: UNK
     Route: 065

REACTIONS (15)
  - Subarachnoid haemorrhage [Fatal]
  - Drug interaction [Fatal]
  - Loss of consciousness [Fatal]
  - Product prescribing error [Fatal]
  - Coagulation time prolonged [Fatal]
  - Anticoagulation drug level increased [Fatal]
  - Abdominal pain upper [Fatal]
  - Medication error [Fatal]
  - Abdominal pain [Not Recovered/Not Resolved]
  - Abdominal pain lower [Unknown]
  - Arthralgia [Unknown]
  - International normalised ratio abnormal [Unknown]
  - Drug ineffective [Not Recovered/Not Resolved]
  - Product use in unapproved indication [Unknown]
  - Labelled drug-drug interaction medication error [Unknown]
